FAERS Safety Report 18002321 (Version 1)
Quarter: 2020Q3

REPORT INFORMATION
  Report Type: Spontaneous
  Country: None (occurrence: US)
  Receive Date: 20200709
  Receipt Date: 20200709
  Transmission Date: 20201103
  Serious: Yes (Other)
  Sender: FDA-Public Use
  Company Number: US-IMPRIMIS NJOF-2087186

PATIENT

DRUGS (1)
  1. PREDNISOLONE ACETATE?MOXIFLOXACIN?NEPAFENAC STERILE OPHTHALMIC SUSPENS [Suspect]
     Active Substance: MOXIFLOXACIN\NEPAFENAC\PREDNISOLONE ACETATE
     Route: 047

REACTIONS (2)
  - Cystoid macular oedema [None]
  - Corneal oedema [None]
